FAERS Safety Report 8579905-6 (Version None)
Quarter: 2012Q3

REPORT INFORMATION
  Report Type: 
  Country: None (occurrence: None)
  Receive Date: 20120731
  Receipt Date: 20120731
  Transmission Date: 20120928
  Serious: No
  Sender: FDA-Public Use
  Company Number: None

PATIENT

DRUGS (1)
  1. DULCOLAX [Suspect]
     Dates: start: 20120718, end: 20120718

REACTIONS (2)
  - VOMITING [None]
  - MALAISE [None]
